FAERS Safety Report 24359844 (Version 1)
Quarter: 2024Q3

REPORT INFORMATION
  Report Type: Spontaneous
  Country: US (occurrence: US)
  Receive Date: 20240924
  Receipt Date: 20240924
  Transmission Date: 20241017
  Serious: No
  Sender: ABBVIE
  Company Number: US-ABBVIE-5931937

PATIENT

DRUGS (1)
  1. HUMIRA [Suspect]
     Active Substance: ADALIMUMAB
     Indication: Product used for unknown indication
     Route: 058
     Dates: start: 20170717

REACTIONS (5)
  - Feeding disorder [Unknown]
  - Fall [Unknown]
  - Chest injury [Unknown]
  - Asthenia [Unknown]
  - Injury [Unknown]

NARRATIVE: CASE EVENT DATE: 20240101
